FAERS Safety Report 17207814 (Version 2)
Quarter: 2020Q1

REPORT INFORMATION
  Report Type: Spontaneous
  Country: US (occurrence: US)
  Receive Date: 20191227
  Receipt Date: 20200128
  Transmission Date: 20200409
  Serious: No
  Sender: FDA-Public Use
  Company Number: US-VERTEX PHARMACEUTICALS-2019-013343

PATIENT
  Age: 19 Year
  Sex: Female

DRUGS (14)
  1. ALBUTEROL SULFATE. [Concomitant]
     Active Substance: ALBUTEROL SULFATE
     Indication: WHEEZING
     Dosage: 3 MILLILITER, EVERY 4 HOURS
  2. SODIUM CHLORIDE. [Concomitant]
     Active Substance: SODIUM CHLORIDE
     Dosage: 4 MILLILITER, BID
  3. TRIKAFTA [Suspect]
     Active Substance: ELEXACAFTOR\IVACAFTOR\TEZACAFTOR
     Indication: CYSTIC FIBROSIS
     Dosage: 100 MG ELEXACAFTOR/ 50 MG TEZACAFTOR/ 75 MG IVACAFTOR AND 150 MG IVACAFTOR
     Route: 048
     Dates: start: 20191214
  4. CETIRIZINE HCL [Concomitant]
     Active Substance: CETIRIZINE HYDROCHLORIDE
     Dosage: 1 DOSAGE FORM, QD
  5. CHOLECALCIFEROL [Concomitant]
     Active Substance: CHOLECALCIFEROL
     Dosage: 50000 UNK
  6. CHOLECALCIFEROL [Concomitant]
     Active Substance: CHOLECALCIFEROL
     Dosage: 50000 UNIT, 1 CAPSULE, ONE TIMW PER WEEK
     Route: 048
  7. AZITHROMYCIN ANHYDROUS. [Concomitant]
     Active Substance: AZITHROMYCIN ANHYDROUS
     Dosage: 500 MG, EVERY MONDAY. WEDNESDAY, FRIDAY
  8. FLUTICASONE PROPIONATE;SALMETEROL [Concomitant]
     Active Substance: FLUTICASONE PROPIONATE\SALMETEROL XINAFOATE
     Dosage: 500-50 MCG/ DOSE
  9. FERROUS SULFATE. [Concomitant]
     Active Substance: FERROUS SULFATE
     Dosage: 325 MG, QD WITH BREAKFAST
  10. SERTRALINE HCL [Concomitant]
     Active Substance: SERTRALINE HYDROCHLORIDE
     Dosage: 1 DOSAGE FORM, QD
  11. ALBUTEROL HFA [Concomitant]
     Active Substance: ALBUTEROL SULFATE
     Indication: WHEEZING
     Dosage: 90 MICROGRAM, 2 PUFFS EVERY 4 HOURS
  12. CREON [Concomitant]
     Active Substance: PANCRELIPASE AMYLASE\PANCRELIPASE LIPASE\PANCRELIPASE PROTEASE
     Dosage: 24000-76000-120000 UNIT, 4 CAPSULES BEFORE MEALS AND 2 CAPSULES BEFOR SNACKS
  13. PREDNISONE. [Concomitant]
     Active Substance: PREDNISONE
     Dosage: 2 DOSAGE FORM, QD
  14. IPRATROPIUM BROMIDE. [Concomitant]
     Active Substance: IPRATROPIUM BROMIDE
     Dosage: 2.5 MILLILITER, EVERY 6 HOURS

REACTIONS (5)
  - Abdominal pain [Unknown]
  - Myalgia [Unknown]
  - Nausea [Recovering/Resolving]
  - Respiratory tract congestion [Recovering/Resolving]
  - Rhinorrhoea [Not Recovered/Not Resolved]

NARRATIVE: CASE EVENT DATE: 20191214
